FAERS Safety Report 23783497 (Version 1)
Quarter: 2024Q2

REPORT INFORMATION
  Report Type: Report from Study
  Country: CO (occurrence: CO)
  Receive Date: 20240425
  Receipt Date: 20240425
  Transmission Date: 20240716
  Serious: Yes (Hospitalization, Other)
  Sender: FDA-Public Use
  Company Number: CO-ASTELLAS-2024US011798

PATIENT
  Age: 4 Year
  Sex: Male
  Weight: 11 kg

DRUGS (1)
  1. TACROLIMUS [Suspect]
     Active Substance: TACROLIMUS
     Indication: Liver transplant
     Route: 048
     Dates: start: 20210212

REACTIONS (4)
  - Respiratory disorder [Unknown]
  - Pneumonia viral [Unknown]
  - Graft infection [Unknown]
  - Hepatitis viral [Unknown]
